FAERS Safety Report 10472274 (Version 1)
Quarter: 2014Q3

REPORT INFORMATION
  Report Type: Spontaneous
  Country: US (occurrence: None)
  Receive Date: 20140923
  Receipt Date: 20140923
  Transmission Date: 20150326
  Serious: Yes (Hospitalization)
  Sender: FDA-Public Use
  Company Number: None

PATIENT
  Age: 60 Year
  Sex: Male
  Weight: 105 kg

DRUGS (1)
  1. METOPROLOL [Suspect]
     Active Substance: METOPROLOL
     Indication: ATRIAL FIBRILLATION
     Dosage: 1 TABLET, BID, ORAL
     Route: 048
     Dates: start: 20040730, end: 20140810

REACTIONS (1)
  - Bronchospasm [None]

NARRATIVE: CASE EVENT DATE: 20140730
